FAERS Safety Report 4294797-1 (Version None)
Quarter: 2004Q1

REPORT INFORMATION
  Report Type: 
  Country: None (occurrence: None)
  Receive Date: 20040216
  Receipt Date: 20021203
  Transmission Date: 20041129
  Serious: No
  Sender: FDA-Public Use
  Company Number: US-GLAXOSMITHKLINE-A0387995A

PATIENT
  Age: 11 Year
  Sex: Female
  Weight: 45.5 kg

DRUGS (1)
  1. LAMICTAL [Suspect]
     Dosage: 175MG PER DAY
     Route: 048
     Dates: start: 20011101

REACTIONS (5)
  - ALOPECIA [None]
  - ARTHRALGIA [None]
  - CONVULSION [None]
  - MYALGIA [None]
  - RHEUMATOID ARTHRITIS [None]
